FAERS Safety Report 4349143-1 (Version None)
Quarter: 2004Q2

REPORT INFORMATION
  Report Type: 
  Country: None (occurrence: None)
  Receive Date: 20040426
  Receipt Date: 20040426
  Transmission Date: 20050107
  Serious: Yes (Other)
  Sender: FDA-Public Use
  Company Number: None

PATIENT
  Age: 3 Year

DRUGS (1)
  1. CHILDREN'S MOTRIN [Suspect]

REACTIONS (2)
  - IRRITABILITY [None]
  - ORAL DISCOMFORT [None]
